FAERS Safety Report 8269209-3 (Version None)
Quarter: 2012Q1

REPORT INFORMATION
  Report Type: 
  Country: None (occurrence: None)
  Receive Date: 20120327
  Receipt Date: 20090529
  Transmission Date: 20120608
  Serious: Yes (Other)
  Sender: FDA-Public Use
  Company Number: PHEH2009US05511

PATIENT
  Sex: Female

DRUGS (4)
  1. GLEEVEC [Suspect]
     Indication: CHRONIC MYELOID LEUKAEMIA
     Dosage: 400;300 MG/DAY, ORAL
     Route: 048
     Dates: start: 20081124
  2. FLECAINIDE ACETATE [Concomitant]
  3. COUMADIN [Concomitant]
  4. DIGOXIN [Concomitant]

REACTIONS (3)
  - NEUTROPENIA [None]
  - PERIORBITAL DISORDER [None]
  - PANCYTOPENIA [None]
